FAERS Safety Report 10606597 (Version 1)
Quarter: 2014Q4

REPORT INFORMATION
  Report Type: Spontaneous
  Country: US (occurrence: None)
  Receive Date: 20141124
  Receipt Date: 20141124
  Transmission Date: 20150529
  Serious: Yes (Disabling)
  Sender: FDA-Public Use
  Company Number: None

PATIENT
  Age: 75 Year
  Sex: Female
  Weight: 58.97 kg

DRUGS (1)
  1. SYMBICORT [Suspect]
     Active Substance: BUDESONIDE\FORMOTEROL FUMARATE DIHYDRATE
     Indication: CHRONIC OBSTRUCTIVE PULMONARY DISEASE
     Dosage: 2 PUFFS, INHALATION
     Route: 055
     Dates: start: 20141107, end: 20141110

REACTIONS (7)
  - Nightmare [None]
  - Abdominal pain [None]
  - Dry skin [None]
  - Insomnia [None]
  - Epistaxis [None]
  - Headache [None]
  - Unevaluable event [None]

NARRATIVE: CASE EVENT DATE: 20141107
